FAERS Safety Report 7510474-5 (Version None)
Quarter: 2011Q2

REPORT INFORMATION
  Report Type: 
  Country: None (occurrence: None)
  Receive Date: 20110527
  Receipt Date: 20110524
  Transmission Date: 20111010
  Serious: No
  Sender: FDA-Public Use
  Company Number: US-PFIZER INC-2011113267

PATIENT
  Age: 39 Year
  Sex: Female
  Weight: 229 kg

DRUGS (1)
  1. ADVIL LIQUI-GELS [Suspect]
     Indication: TOOTHACHE
     Dosage: TWO TABLETS OF 200 MG, DAILY
     Route: 048
     Dates: start: 20110523

REACTIONS (1)
  - DIZZINESS [None]
